FAERS Safety Report 14078510 (Version 1)
Quarter: 2017Q4

REPORT INFORMATION
  Report Type: Spontaneous
  Country: US (occurrence: None)
  Receive Date: 20171012
  Receipt Date: 20171012
  Transmission Date: 20180321
  Serious: Yes (Hospitalization)
  Sender: FDA-Public Use
  Company Number: None

PATIENT
  Age: 36 Year
  Sex: Female
  Weight: 103 kg

DRUGS (1)
  1. MEMANTINE HYDROCHLORIDE. [Suspect]
     Active Substance: MEMANTINE HYDROCHLORIDE
     Dates: end: 20171004

REACTIONS (8)
  - Balance disorder [None]
  - Dizziness [None]
  - Decreased appetite [None]
  - Nausea [None]
  - Vomiting [None]
  - Fatigue [None]
  - Dehydration [None]
  - Lung cancer metastatic [None]

NARRATIVE: CASE EVENT DATE: 20171005
